FAERS Safety Report 5893007-9 (Version None)
Quarter: 2008Q3

REPORT INFORMATION
  Report Type: 
  Country: None (occurrence: None)
  Receive Date: 20080923
  Receipt Date: 20080404
  Transmission Date: 20090109
  Serious: No
  Sender: FDA-Public Use
  Company Number: US-ASTRAZENECA-2007UW07699

PATIENT
  Age: 425 Month
  Sex: Female
  Weight: 103.2 kg

DRUGS (8)
  1. SEROQUEL [Suspect]
     Indication: BIPOLAR DISORDER
     Route: 048
     Dates: start: 20040701, end: 20040708
  2. SEROQUEL [Suspect]
     Indication: DEPRESSION
     Route: 048
     Dates: start: 20040701, end: 20040708
  3. SEROQUEL [Suspect]
     Dates: start: 20040901, end: 20060501
  4. SEROQUEL [Suspect]
     Dates: start: 20040901, end: 20060501
  5. ABILIFY [Concomitant]
     Route: 048
     Dates: start: 20040101, end: 20050101
  6. TRAZODONE HCL [Concomitant]
  7. LEXAPRO [Concomitant]
  8. XANAX [Concomitant]

REACTIONS (3)
  - BLOOD GLUCOSE INCREASED [None]
  - DIABETES MELLITUS [None]
  - POLYCYSTIC OVARIES [None]
